FAERS Safety Report 5401753-6 (Version None)
Quarter: 2007Q3

REPORT INFORMATION
  Report Type: 
  Country: None (occurrence: None)
  Receive Date: 20070731
  Receipt Date: 20070727
  Transmission Date: 20080115
  Serious: Yes (Death, Other)
  Sender: FDA-Public Use
  Company Number: US-BRISTOL-MYERS SQUIBB COMPANY-13861349

PATIENT
  Age: 6 Year
  Sex: Female

DRUGS (5)
  1. CARBOPLATIN [Suspect]
     Indication: RETINOBLASTOMA
  2. VINCRISTINE SULFATE [Suspect]
     Indication: RETINOBLASTOMA
  3. CYCLOPHOSPHAMIDE [Suspect]
     Indication: RETINOBLASTOMA
  4. ETOPOSIDE [Suspect]
     Indication: RETINOBLASTOMA
  5. RADIATION THERAPY [Suspect]
     Indication: RETINOBLASTOMA

REACTIONS (3)
  - ACUTE MYELOID LEUKAEMIA [None]
  - ACUTE RESPIRATORY DISTRESS SYNDROME [None]
  - SEPSIS [None]
